FAERS Safety Report 7376382-8 (Version None)
Quarter: 2011Q1

REPORT INFORMATION
  Report Type: 
  Country: None (occurrence: None)
  Receive Date: 20110325
  Receipt Date: 20110228
  Transmission Date: 20110831
  Serious: Yes (Hospitalization)
  Sender: FDA-Public Use
  Company Number: US-BAYER-201041138NA

PATIENT
  Sex: Female
  Weight: 58.05 kg

DRUGS (9)
  1. YASMIN [Suspect]
     Indication: CONTRACEPTION
  2. IBUPROFEN [Concomitant]
     Indication: MIGRAINE
     Dosage: UNK UNK, PRN
  3. DAILY VITAMINS [Concomitant]
     Dosage: UNK UNK, QD
     Route: 048
  4. DOXYCYCLINE [Concomitant]
     Dosage: 100 MG, UNK
     Route: 048
     Dates: start: 20061114, end: 20061213
  5. YASMIN [Suspect]
     Indication: ACNE
     Dosage: UNK
     Dates: start: 20060901, end: 20061201
  6. OCELLA [Suspect]
     Indication: CONTRACEPTION
     Dosage: UNK
     Dates: start: 20090301
  7. CAMILA [Suspect]
     Dosage: UNK
     Dates: start: 20080301, end: 20080701
  8. ANTIBIOTICS [Concomitant]
     Indication: STREPTOBACILLUS INFECTION
     Dosage: UNK UNK, BID
     Route: 048
     Dates: start: 20090301
  9. TRETINOIN [Concomitant]
     Dosage: 0.05 %, UNK
     Dates: start: 20061016

REACTIONS (2)
  - GALLBLADDER DISORDER [None]
  - ABDOMINAL PAIN [None]
